FAERS Safety Report 7000194-8 (Version None)
Quarter: 2010Q3

REPORT INFORMATION
  Report Type: 
  Country: None (occurrence: None)
  Receive Date: 20100920
  Receipt Date: 20100701
  Transmission Date: 20110219
  Serious: Yes (Life-Threatening)
  Sender: FDA-Public Use
  Company Number: US-ASTRAZENECA-2010SE30731

PATIENT
  Age: 933 Month
  Sex: Male
  Weight: 54.4 kg

DRUGS (1)
  1. SEROQUEL [Suspect]
     Route: 048
     Dates: end: 20100401

REACTIONS (2)
  - DRUG DOSE OMISSION [None]
  - SUICIDE ATTEMPT [None]
